FAERS Safety Report 7775860-7 (Version None)
Quarter: 2011Q3

REPORT INFORMATION
  Report Type: 
  Country: None (occurrence: None)
  Receive Date: 20110923
  Receipt Date: 20110906
  Transmission Date: 20111222
  Serious: No
  Sender: FDA-Public Use
  Company Number: US-B.I. PHARMACEUTICALS,INC./RIDGEFIELD-2011-BP-21594BP

PATIENT
  Sex: Female

DRUGS (10)
  1. SPIRONOL [Concomitant]
     Indication: HYPERTENSION
  2. LISINOPRIL [Concomitant]
     Indication: HYPERTENSION
  3. PLAVIX [Concomitant]
     Indication: ANTICOAGULANT THERAPY
  4. CARVEDILOL [Concomitant]
     Indication: CARDIAC FAILURE CONGESTIVE
  5. ASPIRIN [Concomitant]
     Indication: PROPHYLAXIS
  6. DIGOXIN [Concomitant]
     Indication: CARDIAC FAILURE CONGESTIVE
  7. SPIRONOL [Concomitant]
     Indication: CARDIAC FAILURE CONGESTIVE
  8. CARVEDILOL [Concomitant]
     Indication: HYPERTENSION
  9. SPIRIVA [Suspect]
     Indication: CHRONIC OBSTRUCTIVE PULMONARY DISEASE
     Dosage: 18 MCG
     Route: 055
     Dates: start: 20090101
  10. SYMBICORT [Concomitant]
     Indication: CHRONIC OBSTRUCTIVE PULMONARY DISEASE

REACTIONS (1)
  - DYSPNOEA [None]
